FAERS Safety Report 7246368-2 (Version None)
Quarter: 2011Q1

REPORT INFORMATION
  Report Type: 
  Country: None (occurrence: None)
  Receive Date: 20110126
  Receipt Date: 20110121
  Transmission Date: 20110831
  Serious: Yes (Life-Threatening, Hospitalization, Other)
  Sender: FDA-Public Use
  Company Number: JP-PFIZER INC-2011014650

PATIENT
  Age: 83 Year
  Sex: Female
  Weight: 37 kg

DRUGS (19)
  1. ALLOPURINOL [Concomitant]
  2. FERROUS CITRATE [Concomitant]
  3. MYSLEE [Concomitant]
  4. MEDICON [Concomitant]
     Dosage: UNK
     Dates: start: 20101226
  5. TOUGHMAC E [Concomitant]
  6. ZITHROMAX [Suspect]
     Indication: UPPER RESPIRATORY TRACT INFLAMMATION
     Dosage: 500 MG, 1X/DAY
     Route: 048
     Dates: start: 20110102, end: 20110104
  7. LASIX [Concomitant]
  8. ACARDI [Concomitant]
  9. BISOLVON [Suspect]
     Indication: UPPER RESPIRATORY TRACT INFLAMMATION
     Dosage: 2 DF, 3X/DAY
     Route: 048
     Dates: start: 20110102, end: 20110104
  10. ROCEPHIN [Suspect]
     Indication: UPPER RESPIRATORY TRACT INFLAMMATION
     Dosage: 2 G, 1X/DAY
     Route: 041
     Dates: start: 20110102, end: 20110102
  11. BLOPRESS [Concomitant]
  12. MUCODYNE [Concomitant]
     Dosage: UNK
     Dates: start: 20101226
  13. PROMETHAZINE METHYLENEDISALICYLATE [Suspect]
     Indication: UPPER RESPIRATORY TRACT INFLAMMATION
     Dosage: 1 G, 3X/DAY
     Route: 048
     Dates: start: 20110102, end: 20110104
  14. ALDACTONE [Concomitant]
  15. FLOMOX [Concomitant]
     Dosage: UNK
     Dates: start: 20101226
  16. CALONAL [Concomitant]
     Dosage: UNK
     Dates: start: 20101226
  17. SPELEAR [Suspect]
     Indication: UPPER RESPIRATORY TRACT INFLAMMATION
     Dosage: 2 DF, 3X/DAY
     Route: 048
     Dates: start: 20110102, end: 20110104
  18. LANSOPRAZOLE [Concomitant]
  19. BIOFERMIN [Concomitant]

REACTIONS (2)
  - HYPERKALAEMIA [None]
  - CARDIAC FAILURE [None]
